FAERS Safety Report 19615679 (Version 4)
Quarter: 2021Q3

REPORT INFORMATION
  Report Type: Spontaneous
  Country: US (occurrence: US)
  Receive Date: 20210727
  Receipt Date: 20210928
  Transmission Date: 20211014
  Serious: Yes (Other)
  Sender: FDA-Public Use
  Company Number: US-PFIZER INC-2021894463

PATIENT
  Age: 68 Year
  Sex: Male
  Weight: 55.3 kg

DRUGS (3)
  1. INLYTA [Suspect]
     Active Substance: AXITINIB
     Dosage: 1 MG
     Dates: start: 20210702
  2. INLYTA [Suspect]
     Active Substance: AXITINIB
     Dosage: 5 MG
     Dates: start: 20210501
  3. INLYTA [Suspect]
     Active Substance: AXITINIB
     Dosage: 1 MG
     Dates: start: 20210614

REACTIONS (7)
  - Dysphonia [Recovered/Resolved]
  - Diabetes mellitus [Unknown]
  - Insomnia [Recovered/Resolved]
  - Liver function test increased [Recovered/Resolved]
  - Blood glucose increased [Unknown]
  - Blood glucose fluctuation [Unknown]
  - Neuropathy peripheral [Recovered/Resolved]

NARRATIVE: CASE EVENT DATE: 202105
